FAERS Safety Report 12578279 (Version 1)
Quarter: 2016Q3

REPORT INFORMATION
  Report Type: Spontaneous
  Country: IT (occurrence: IT)
  Receive Date: 20160721
  Receipt Date: 20160721
  Transmission Date: 20161109
  Serious: Yes (Death)
  Sender: FDA-Public Use
  Company Number: IT-SCIEGEN PHARMACEUTICALS INC-2016SCILIT00332

PATIENT

DRUGS (1)
  1. GABAPENTIN TABLETS,USP [Suspect]
     Active Substance: GABAPENTIN

REACTIONS (1)
  - Toxicity to various agents [Fatal]
